FAERS Safety Report 17200334 (Version 1)
Quarter: 2019Q4

REPORT INFORMATION
  Report Type: Spontaneous
  Country: US (occurrence: US)
  Receive Date: 20191226
  Receipt Date: 20191226
  Transmission Date: 20200122
  Serious: No
  Sender: FDA-Public Use
  Company Number: US-GILEAD-2019-0444110

PATIENT
  Age: 42 Year
  Sex: Male

DRUGS (5)
  1. SOFOSBUVIR;VELPATASVIR [Suspect]
     Active Substance: SOFOSBUVIR\VELPATASVIR
     Indication: CHRONIC HEPATITIS C
     Dosage: 1 DOSAGE FORM, QD
     Route: 048
     Dates: start: 201911
  2. MULTIVIT [VITAMINS NOS] [Concomitant]
  3. NICOTINE. [Concomitant]
     Active Substance: NICOTINE
  4. MELATONIN [Concomitant]
     Active Substance: MELATONIN
  5. CREATINE [Concomitant]
     Active Substance: CREATINE

REACTIONS (2)
  - Product dose omission [Recovered/Resolved]
  - Headache [Unknown]

NARRATIVE: CASE EVENT DATE: 20191218
